FAERS Safety Report 16442943 (Version 1)
Quarter: 2019Q2

REPORT INFORMATION
  Report Type: Spontaneous
  Country: IT (occurrence: IT)
  Receive Date: 20190617
  Receipt Date: 20190617
  Transmission Date: 20190711
  Serious: Yes (Life-Threatening, Hospitalization, Other)
  Sender: FDA-Public Use
  Company Number: IT-ALLERGAN-1925106US

PATIENT
  Sex: Male
  Weight: 90 kg

DRUGS (1)
  1. BRIMONIDINE [Suspect]
     Active Substance: BRIMONIDINE TARTRATE
     Indication: ACCIDENTAL EXPOSURE TO PRODUCT
     Dosage: 1 ML, SINGLE
     Route: 048

REACTIONS (11)
  - Dizziness [Recovered/Resolved]
  - Incorrect route of product administration [Unknown]
  - Bradycardia [Recovered/Resolved]
  - Toxicity to various agents [Unknown]
  - Confusional state [Recovered/Resolved]
  - Respiratory depression [Recovered/Resolved]
  - Somnolence [Recovered/Resolved]
  - Hypotension [Recovered/Resolved]
  - Accidental overdose [Unknown]
  - Accidental exposure to product [Unknown]
  - Depressed level of consciousness [Recovered/Resolved]
